FAERS Safety Report 9136527 (Version 1)
Quarter: 2013Q1

REPORT INFORMATION
  Report Type: Spontaneous
  Country: US (occurrence: US)
  Receive Date: 20130304
  Receipt Date: 20130304
  Transmission Date: 20140127
  Serious: No
  Sender: FDA-Public Use
  Company Number: US-ABBOTT-12P-163-0959661-00

PATIENT
  Sex: Male
  Weight: 68.1 kg

DRUGS (2)
  1. ANDROGEL 1% [Suspect]
     Indication: BLOOD TESTOSTERONE DECREASED
     Dosage: ONE PACKET PER DAY??ONE PACKET PER DAY
     Dates: start: 2011
  2. ANDROGEL 1% [Suspect]

REACTIONS (2)
  - Diarrhoea [Recovered/Resolved]
  - Feeling abnormal [Recovered/Resolved]
